FAERS Safety Report 7370550-7 (Version None)
Quarter: 2011Q1

REPORT INFORMATION
  Report Type: 
  Country: None (occurrence: None)
  Receive Date: 20110323
  Receipt Date: 20110310
  Transmission Date: 20110831
  Serious: No
  Sender: FDA-Public Use
  Company Number: US-BAYER-2011-023380

PATIENT
  Age: 28 Year
  Sex: Male
  Weight: 66.667 kg

DRUGS (3)
  1. ALEVE (CAPLET) [Suspect]
     Indication: ANALGESIC THERAPY
     Dosage: DAILY DOSE 3 DF
     Route: 048
     Dates: start: 20110306, end: 20110306
  2. ALEVE (CAPLET) [Suspect]
     Dosage: DAILY DOSE 3 DF
     Route: 048
     Dates: start: 20110308, end: 20110308
  3. ALEVE (CAPLET) [Suspect]
     Indication: PAIN IN EXTREMITY
     Dosage: DAILY DOSE 2 DF
     Route: 048
     Dates: start: 20110307, end: 20110307

REACTIONS (3)
  - HYPERSENSITIVITY [None]
  - EAR PRURITUS [None]
  - RASH ERYTHEMATOUS [None]
